FAERS Safety Report 8435986-1 (Version None)
Quarter: 2012Q2

REPORT INFORMATION
  Report Type: 
  Country: None (occurrence: None)
  Receive Date: 20120614
  Receipt Date: 20120531
  Transmission Date: 20120825
  Serious: Yes (Death)
  Sender: FDA-Public Use
  Company Number: US-WATSON-2012-08553

PATIENT
  Sex: Male

DRUGS (2)
  1. RAPAFLO [Suspect]
     Indication: URINARY RETENTION
     Dosage: 1 CAP QD
     Route: 048
     Dates: start: 20110101, end: 20120511
  2. CARTIA XT [Concomitant]
     Indication: HYPERTENSION
     Dosage: UNK
     Route: 048
     Dates: end: 20120511

REACTIONS (2)
  - FALL [None]
  - CEREBRAL HAEMORRHAGE [None]
